FAERS Safety Report 12117819 (Version 2)
Quarter: 2016Q1

REPORT INFORMATION
  Report Type: Spontaneous
  Country: US (occurrence: US)
  Receive Date: 20160226
  Receipt Date: 20160317
  Transmission Date: 20160526
  Serious: Yes (Hospitalization, Other)
  Sender: FDA-Public Use
  Company Number: US-BEH-2016058613

PATIENT
  Age: 33 Year
  Sex: Female

DRUGS (4)
  1. HUMATE [Suspect]
     Active Substance: HUMAN COAGULATION FACTOR VIII/VON WILLEBRAND FACTOR COMPLEX
     Indication: VON WILLEBRAND^S DISEASE
     Dosage: STRENGTH 1052 (3045 UNITS NOT REPORTED)
     Route: 042
     Dates: start: 20160129, end: 20160201
  2. HUMATE [Suspect]
     Active Substance: HUMAN COAGULATION FACTOR VIII/VON WILLEBRAND FACTOR COMPLEX
     Dosage: STREGTH 2190 (3045 UNITS NOT PROVIDED)
     Route: 042
     Dates: start: 20160129, end: 20160201
  3. HUMATE [Suspect]
     Active Substance: HUMAN COAGULATION FACTOR VIII/VON WILLEBRAND FACTOR COMPLEX
     Dosage: STRENGTH 2014, DOSE 3045, PRN
     Route: 042
  4. HUMATE [Suspect]
     Active Substance: HUMAN COAGULATION FACTOR VIII/VON WILLEBRAND FACTOR COMPLEX
     Dosage: STRENGTH 1017, DOSE 3045, PRN
     Route: 042

REACTIONS (3)
  - Gastrointestinal haemorrhage [Recovering/Resolving]
  - Haemorrhoids [Unknown]
  - Haemorrhoid operation [Unknown]

NARRATIVE: CASE EVENT DATE: 20160303
